FAERS Safety Report 21416769 (Version 1)
Quarter: 2022Q4

REPORT INFORMATION
  Report Type: Spontaneous
  Country: TR (occurrence: TR)
  Receive Date: 20221006
  Receipt Date: 20221006
  Transmission Date: 20230112
  Serious: Yes (Hospitalization, Other)
  Sender: FDA-Public Use
  Company Number: TR-NOVARTISPH-NVSC2022TR221798

PATIENT
  Age: 60 Year
  Sex: Female

DRUGS (2)
  1. CALCIUM CARBONATE\CALCIUM LACTATE GLUCONATE [Suspect]
     Active Substance: CALCIUM CARBONATE\CALCIUM LACTATE GLUCONATE
     Indication: Hypoparathyroidism
     Dosage: UNK, BID (FOR 30 YEARS IN USE AN EXACT DATE WAS NOT PROVIDED BY THE REPORTER)
     Route: 065
  2. CALCIUM CARBONATE\CALCIUM LACTATE GLUCONATE [Suspect]
     Active Substance: CALCIUM CARBONATE\CALCIUM LACTATE GLUCONATE
     Dosage: UNK, QOD
     Route: 065

REACTIONS (5)
  - Coma [Recovered/Resolved]
  - Calcium deficiency [Recovered/Resolved]
  - Muscle contractions involuntary [Recovered/Resolved]
  - Hypoaesthesia [Recovered/Resolved]
  - Product supply issue [Unknown]
